FAERS Safety Report 23325417 (Version 1)
Quarter: 2023Q4

REPORT INFORMATION
  Report Type: Spontaneous
  Country: NL (occurrence: NL)
  Receive Date: 20231221
  Receipt Date: 20231221
  Transmission Date: 20240110
  Serious: Yes (Hospitalization)
  Sender: FDA-Public Use
  Company Number: None

PATIENT
  Age: 73 Year
  Sex: Female

DRUGS (1)
  1. CAPECITABINE [Suspect]
     Active Substance: CAPECITABINE
     Indication: Breast cancer
     Dosage: STRENGTH:  150 MG, 2000 MG 2DD (TABLET FO)
     Dates: start: 20230101, end: 20230710

REACTIONS (1)
  - Arteriospasm coronary [Recovered/Resolved]
